FAERS Safety Report 20804809 (Version 14)
Quarter: 2024Q1

REPORT INFORMATION
  Report Type: Spontaneous
  Country: US (occurrence: US)
  Receive Date: 20220509
  Receipt Date: 20240207
  Transmission Date: 20240409
  Serious: Yes (Other)
  Sender: FDA-Public Use
  Company Number: US-PFIZER INC-202200641760

PATIENT
  Age: 73 Year
  Sex: Female
  Weight: 87.08 kg

DRUGS (6)
  1. IBRANCE [Suspect]
     Active Substance: PALBOCICLIB
     Indication: Breast cancer stage IV
     Dosage: 100 MG, CYCLIC (21 DAYS AND THEN WAIT 7 DAYS)
     Route: 048
     Dates: start: 2016
  2. LETROZOLE [Concomitant]
     Active Substance: LETROZOLE
     Dosage: 2.5 MG
  3. TOZINAMERAN [Concomitant]
     Active Substance: TOZINAMERAN
     Indication: COVID-19 immunisation
     Dosage: DOSE 1, SINGLE
     Dates: start: 20210309, end: 20210309
  4. TOZINAMERAN [Concomitant]
     Active Substance: TOZINAMERAN
     Dosage: DOSE 2, SINGLE
     Dates: start: 20210330, end: 20210330
  5. TOZINAMERAN [Concomitant]
     Active Substance: TOZINAMERAN
     Dosage: DOSE 3 (BOOSTER), SINGLE
     Dates: start: 20210908, end: 20210908
  6. TOZINAMERAN [Concomitant]
     Active Substance: TOZINAMERAN
     Dosage: DOSE 4 (BOOSTER), SINGLE
     Dates: start: 20221103, end: 20221103

REACTIONS (14)
  - Weight increased [Recovered/Resolved]
  - Metabolic disorder [Not Recovered/Not Resolved]
  - Dry skin [Not Recovered/Not Resolved]
  - Abdominal discomfort [Not Recovered/Not Resolved]
  - Irritable bowel syndrome [Not Recovered/Not Resolved]
  - White blood cell count decreased [Not Recovered/Not Resolved]
  - Ear dryness [Unknown]
  - Scab [Unknown]
  - Dry eye [Unknown]
  - Nasal dryness [Unknown]
  - Gastrointestinal disorder [Unknown]
  - Alopecia [Unknown]
  - Bowel movement irregularity [Unknown]
  - Neoplasm progression [Not Recovered/Not Resolved]

NARRATIVE: CASE EVENT DATE: 20220101
